FAERS Safety Report 19938055 (Version 1)
Quarter: 2021Q4

REPORT INFORMATION
  Report Type: Other
  Country: US (occurrence: US)
  Receive Date: 20211011
  Receipt Date: 20211011
  Transmission Date: 20220303
  Serious: No
  Sender: FDA-Public Use
  Company Number: US-ROCHE-2810069

PATIENT
  Age: 8 Year
  Sex: Male

DRUGS (1)
  1. VEMURAFENIB [Suspect]
     Active Substance: VEMURAFENIB
     Indication: Ganglioglioma
     Route: 065

REACTIONS (3)
  - Rash erythematous [Unknown]
  - Rash papular [Unknown]
  - Rash pruritic [Unknown]
